FAERS Safety Report 5638158-9 (Version None)
Quarter: 2008Q1

REPORT INFORMATION
  Report Type: 
  Country: None (occurrence: None)
  Receive Date: 20080226
  Receipt Date: 20080215
  Transmission Date: 20080703
  Serious: Yes (Hospitalization, Other)
  Sender: FDA-Public Use
  Company Number: CA-ELI_LILLY_AND_COMPANY-CA200802001754

PATIENT
  Age: 66 Year
  Sex: Male

DRUGS (6)
  1. FORTEO [Suspect]
     Indication: OSTEOPOROSIS
     Dosage: 20 UG, DAILY (1/D)
     Route: 058
     Dates: start: 20070331
  2. CALCIUM                                 /N/A/ [Concomitant]
  3. VITAMIN D [Concomitant]
  4. TYLENOL (CAPLET) [Concomitant]
     Dates: start: 20080131
  5. ADVAIR DISKUS 100/50 [Concomitant]
     Dosage: 500 UG, 2/D
     Route: 055
     Dates: end: 20080211
  6. ADVAIR DISKUS 100/50 [Concomitant]
     Dosage: 250 UG, 2/D
     Route: 055
     Dates: start: 20080212

REACTIONS (5)
  - FATIGUE [None]
  - LUNG INFECTION [None]
  - OXYGEN SATURATION DECREASED [None]
  - PRODUCTIVE COUGH [None]
  - SPUTUM PURULENT [None]
